FAERS Safety Report 5477128-0 (Version None)
Quarter: 2007Q3

REPORT INFORMATION
  Report Type: 
  Country: None (occurrence: None)
  Receive Date: 20070904
  Receipt Date: 20070514
  Transmission Date: 20080115
  Serious: No
  Sender: FDA-Public Use
  Company Number: PHEH2007US05183

PATIENT
  Age: 87 Year
  Sex: Female

DRUGS (2)
  1. ENABLEX [Suspect]
     Indication: URINARY INCONTINENCE
     Dosage: 7.5 MG, QD; 15 MG,
     Dates: start: 20070325
  2. ENABLEX [Suspect]
     Indication: URINARY INCONTINENCE
     Dosage: 7.5 MG, QD; 15 MG,
     Dates: start: 20070410

REACTIONS (2)
  - CONSTIPATION [None]
  - DRUG INEFFECTIVE [None]
